FAERS Safety Report 14671866 (Version 1)
Quarter: 2018Q1

REPORT INFORMATION
  Report Type: Spontaneous
  Country: FR (occurrence: FR)
  Receive Date: 20180323
  Receipt Date: 20180323
  Transmission Date: 20180509
  Serious: Yes (Other)
  Sender: FDA-Public Use
  Company Number: FR-MERCK KGAA-2044368

PATIENT
  Age: 47 Year
  Sex: Female

DRUGS (2)
  1. LEVOTHYROX 50 NF [Concomitant]
     Active Substance: LEVOTHYROXINE
     Dates: start: 20170903, end: 20170907
  2. NOVOTHYROX [Suspect]
     Active Substance: LEVOTHYROXINE SODIUM
     Indication: HYPOTHYROIDISM
     Dates: start: 20170405, end: 2017

REACTIONS (26)
  - Alopecia [Not Recovered/Not Resolved]
  - Musculoskeletal discomfort [Not Recovered/Not Resolved]
  - Migraine [Recovered/Resolved]
  - Dizziness [None]
  - Insomnia [None]
  - Headache [Not Recovered/Not Resolved]
  - Vomiting [Not Recovered/Not Resolved]
  - Weight increased [Not Recovered/Not Resolved]
  - Myalgia [Not Recovered/Not Resolved]
  - Vision blurred [Not Recovered/Not Resolved]
  - Blood pressure increased [None]
  - Asthenia [None]
  - Arthralgia [Not Recovered/Not Resolved]
  - Thyroid mass [Not Recovered/Not Resolved]
  - Abdominal pain [None]
  - Vertigo [Not Recovered/Not Resolved]
  - Dyspnoea [Not Recovered/Not Resolved]
  - Swelling face [Not Recovered/Not Resolved]
  - Insomnia [Not Recovered/Not Resolved]
  - Pain [None]
  - Bradycardia [None]
  - Tinnitus [Not Recovered/Not Resolved]
  - Neck pain [None]
  - Oedema [None]
  - Fatigue [Not Recovered/Not Resolved]
  - Intervertebral disc degeneration [None]

NARRATIVE: CASE EVENT DATE: 2017
